FAERS Safety Report 6211093-3 (Version None)
Quarter: 2009Q2

REPORT INFORMATION
  Report Type: 
  Country: None (occurrence: None)
  Receive Date: 20090602
  Receipt Date: 20090528
  Transmission Date: 20091009
  Serious: Yes (Other)
  Sender: FDA-Public Use
  Company Number: SE-BRISTOL-MYERS SQUIBB COMPANY-14641898

PATIENT
  Age: 65 Year
  Sex: Male

DRUGS (2)
  1. ORENCIA [Suspect]
     Indication: RHEUMATOID ARTHRITIS
     Dosage: ORENCIA POWDER FOR CONCENTRATE FOR SOLUTION FOR INFUSION 250MG 750MG
     Route: 042
     Dates: start: 20080829
  2. METHOTREXATE [Concomitant]
     Dosage: METHOTREXATE ORION TABS 2.5MG

REACTIONS (1)
  - FATIGUE [None]
